FAERS Safety Report 6250331-8 (Version None)
Quarter: 2009Q2

REPORT INFORMATION
  Report Type: 
  Country: None (occurrence: None)
  Receive Date: 20090630
  Receipt Date: 20090619
  Transmission Date: 20091009
  Serious: Yes (Hospitalization)
  Sender: FDA-Public Use
  Company Number: US-EISAI INC.-E3810-02937-SPO-US

PATIENT
  Age: 56 Year
  Sex: Female
  Weight: 85 kg

DRUGS (7)
  1. ACIPHEX [Suspect]
     Route: 048
  2. HERBAL [Interacting]
     Dosage: UNKNOWN
     Route: 048
  3. VITAMIN TAB [Interacting]
     Dosage: UNKNOWN
     Route: 048
  4. AMITRIPTYLINE [Concomitant]
     Indication: HEADACHE
     Route: 048
  5. TOPROL-XL [Concomitant]
     Route: 048
  6. BIOIDENTICAL HORMONE [Concomitant]
     Dosage: UNKNOWN
     Route: 065
  7. NITROGLYCERIN [Concomitant]
     Dosage: UNKNOWN
     Route: 060

REACTIONS (8)
  - ALOPECIA [None]
  - BLOOD PRESSURE FLUCTUATION [None]
  - CARDIAC DISCOMFORT [None]
  - CHEST PAIN [None]
  - DYSPEPSIA [None]
  - FEELING ABNORMAL [None]
  - NAUSEA [None]
  - POLYP [None]
